FAERS Safety Report 4609737-2 (Version None)
Quarter: 2005Q1

REPORT INFORMATION
  Report Type: 
  Country: None (occurrence: None)
  Receive Date: 20050314
  Receipt Date: 20040906
  Transmission Date: 20050727
  Serious: Yes (Life-Threatening)
  Sender: FDA-Public Use
  Company Number: 8800

PATIENT
  Age: 46 Year
  Sex: Male

DRUGS (2)
  1. GLYCERYL TRINITRATE [Suspect]
     Indication: CHEST PAIN
     Dosage: 2 PUFF (S), SL
     Route: 060
     Dates: start: 20040630, end: 20040630
  2. ASPIRIN [Concomitant]

REACTIONS (2)
  - OBSTRUCTIVE AIRWAYS DISORDER [None]
  - SWOLLEN TONGUE [None]
